FAERS Safety Report 4748393-X (Version None)
Quarter: 2005Q3

REPORT INFORMATION
  Report Type: 
  Country: None (occurrence: None)
  Receive Date: 20050815
  Receipt Date: 20050523
  Transmission Date: 20060218
  Serious: No
  Sender: FDA-Public Use
  Company Number: USA050598719

PATIENT
  Age: 51 Year
  Sex: Male

DRUGS (2)
  1. CIALIS [Suspect]
     Dosage: 20 MG
     Dates: start: 20050501
  2. FLOMAX [Concomitant]

REACTIONS (1)
  - DRUG INEFFECTIVE [None]
